FAERS Safety Report 25969425 (Version 1)
Quarter: 2025Q4

REPORT INFORMATION
  Report Type: Spontaneous
  Country: IN (occurrence: IN)
  Receive Date: 20251028
  Receipt Date: 20251028
  Transmission Date: 20260119
  Serious: Yes (Hospitalization)
  Sender: LEADING PHARMA
  Company Number: IN-LEADINGPHARMA-IN-2025LEALIT00209

PATIENT
  Age: 15 Year
  Sex: Female

DRUGS (4)
  1. IMIPRAMINE HYDROCHLORIDE [Suspect]
     Active Substance: IMIPRAMINE HYDROCHLORIDE
     Indication: Depressive symptom
     Route: 065
  2. IMIPRAMINE HYDROCHLORIDE [Suspect]
     Active Substance: IMIPRAMINE HYDROCHLORIDE
     Dosage: 2 WEEKS
     Route: 065
  3. IMIPRAMINE HYDROCHLORIDE [Suspect]
     Active Substance: IMIPRAMINE HYDROCHLORIDE
     Route: 065
  4. MIRABEGRON [Concomitant]
     Active Substance: MIRABEGRON
     Indication: Enuresis
     Route: 065

REACTIONS (2)
  - Catatonia [Recovered/Resolved]
  - Fear [Recovered/Resolved]
